FAERS Safety Report 21731823 (Version 2)
Quarter: 2023Q1

REPORT INFORMATION
  Report Type: Report from Study
  Country: US (occurrence: US)
  Receive Date: 20221215
  Receipt Date: 20230128
  Transmission Date: 20230418
  Serious: No
  Sender: FDA-Public Use
  Company Number: US-ABBVIE-4197771

PATIENT
  Age: 64 Year
  Sex: Male

DRUGS (1)
  1. HUMIRA [Suspect]
     Active Substance: ADALIMUMAB
     Indication: Rheumatoid arthritis
     Dosage: CITRATE FREE
     Route: 058
     Dates: start: 20220915

REACTIONS (5)
  - Appetite disorder [Unknown]
  - Dizziness [Unknown]
  - Pruritus [Recovered/Resolved]
  - Rash pruritic [Unknown]
  - Visual impairment [Unknown]

NARRATIVE: CASE EVENT DATE: 20221205
